FAERS Safety Report 5920220-4 (Version None)
Quarter: 2008Q4

REPORT INFORMATION
  Report Type: 
  Country: None (occurrence: None)
  Receive Date: 20081016
  Receipt Date: 20071228
  Transmission Date: 20090506
  Serious: No
  Sender: FDA-Public Use
  Company Number: A0700755A

PATIENT
  Age: 15 Month
  Sex: Male

DRUGS (3)
  1. CEFTIN [Suspect]
     Indication: EAR INFECTION
     Route: 048
     Dates: start: 20071226
  2. TYLENOL (CAPLET) [Concomitant]
  3. DALLERGY [Concomitant]

REACTIONS (1)
  - VOMITING [None]
